FAERS Safety Report 10046823 (Version 2)
Quarter: 2014Q2

REPORT INFORMATION
  Report Type: Spontaneous
  Country: ES (occurrence: ES)
  Receive Date: 20140331
  Receipt Date: 20140403
  Transmission Date: 20141212
  Serious: Yes (Hospitalization, Other)
  Sender: FDA-Public Use
  Company Number: PHHY2014ES036930

PATIENT
  Age: 33 Year
  Sex: Female

DRUGS (3)
  1. LEPONEX [Suspect]
     Indication: SCHIZOPHRENIA, PARANOID TYPE
     Dosage: 400 MG, DAILY
     Route: 048
     Dates: start: 20140224
  2. LEPONEX [Suspect]
     Dosage: 300 MG, DAILY
     Route: 048
  3. TRICYCLIC ANTIDEPRESSANTS [Concomitant]
     Dosage: UNK UKN, UNK

REACTIONS (1)
  - Generalised tonic-clonic seizure [Recovered/Resolved]
